FAERS Safety Report 9660562 (Version 1)
Quarter: 2013Q4

REPORT INFORMATION
  Report Type: Spontaneous
  Country: US (occurrence: US)
  Receive Date: 20131031
  Receipt Date: 20131031
  Transmission Date: 20140711
  Serious: Yes (Hospitalization)
  Sender: FDA-Public Use
  Company Number: US-PFIZER INC-2013305718

PATIENT
  Age: 55 Year
  Sex: Female

DRUGS (3)
  1. XANAX [Suspect]
     Dosage: UNK
  2. PREDNISONE [Suspect]
     Indication: RHEUMATOID ARTHRITIS
     Dosage: UNK
  3. PROLASTIN [Suspect]
     Dosage: UNK, WEEKLY
     Route: 042

REACTIONS (3)
  - Lung infection [Recovered/Resolved]
  - Dyspnoea [Recovered/Resolved]
  - Drug hypersensitivity [Recovered/Resolved]
